FAERS Safety Report 7674908-8 (Version None)
Quarter: 2011Q3

REPORT INFORMATION
  Report Type: 
  Country: None (occurrence: None)
  Receive Date: 20110810
  Receipt Date: 20110728
  Transmission Date: 20111222
  Serious: Yes (Hospitalization, Other)
  Sender: FDA-Public Use
  Company Number: GB-ELI_LILLY_AND_COMPANY-GB201106006721

PATIENT
  Age: 79 Year
  Sex: Female

DRUGS (2)
  1. FLUOXETINE [Suspect]
     Indication: DEPRESSION
     Dosage: 40 MG, QD
  2. FLUOXETINE [Suspect]
     Dosage: 60 MG, QD

REACTIONS (6)
  - HAEMOGLOBIN DECREASED [None]
  - ABDOMINAL PAIN [None]
  - VOMITING [None]
  - GASTROINTESTINAL HAEMORRHAGE [None]
  - PLATELET FUNCTION TEST ABNORMAL [None]
  - OESOPHAGITIS [None]
